FAERS Safety Report 5937999-8 (Version None)
Quarter: 2008Q4

REPORT INFORMATION
  Report Type: 
  Country: None (occurrence: None)
  Receive Date: 20081031
  Receipt Date: 20081021
  Transmission Date: 20090506
  Serious: Yes (Hospitalization, Other)
  Sender: FDA-Public Use
  Company Number: US-PFIZER INC-2008079824

PATIENT
  Sex: Male
  Weight: 88.5 kg

DRUGS (2)
  1. FELDENE [Suspect]
     Indication: ARTHRITIS
  2. FIORINAL [Concomitant]

REACTIONS (5)
  - ALLERGY TEST POSITIVE [None]
  - ARRHYTHMIA [None]
  - DERMATITIS CONTACT [None]
  - ECZEMA [None]
  - HYPERSENSITIVITY [None]
